FAERS Safety Report 7416996-X (Version None)
Quarter: 2011Q2

REPORT INFORMATION
  Report Type: 
  Country: None (occurrence: None)
  Receive Date: 20110407
  Receipt Date: 20110324
  Transmission Date: 20111010
  Serious: Yes (Other)
  Sender: FDA-Public Use
  Company Number: 2011AP000459

PATIENT
  Age: 51 Year
  Sex: Female

DRUGS (5)
  1. EPREX [Suspect]
     Indication: NEPHROGENIC ANAEMIA
     Dosage: 2000 IU TIW, SC
     Route: 058
     Dates: start: 19921203, end: 19930609
  2. MESALAZINE [Concomitant]
  3. AZATHIOPRINE [Concomitant]
  4. MYCOPHENOLATE MOFETIL [Suspect]
     Indication: PRODUCT USED FOR UNKNOWN INDICATION
     Dates: start: 20071112, end: 20110113
  5. TACROLIMUS [Suspect]
     Indication: PRODUCT USED FOR UNKNOWN INDICATION
     Dates: start: 20070907

REACTIONS (5)
  - DRUG INEFFECTIVE [None]
  - BONE MARROW FAILURE [None]
  - BLOOD PRODUCT TRANSFUSION DEPENDENT [None]
  - APLASIA PURE RED CELL [None]
  - THERAPEUTIC RESPONSE DECREASED [None]
